FAERS Safety Report 22258615 (Version 1)
Quarter: 2023Q2

REPORT INFORMATION
  Report Type: Spontaneous
  Country: IT (occurrence: IT)
  Receive Date: 20230427
  Receipt Date: 20230427
  Transmission Date: 20230721
  Serious: Yes (Hospitalization)
  Sender: FDA-Public Use
  Company Number: None

PATIENT
  Age: 54 Year
  Sex: Male

DRUGS (3)
  1. GEMCITABINE [Suspect]
     Active Substance: GEMCITABINE
     Indication: Prostate cancer
     Dates: start: 20220322
  2. CISPLATIN [Suspect]
     Active Substance: CISPLATIN
     Indication: Prostate cancer
     Dates: start: 20220315
  3. GEMCITABINE [Suspect]
     Active Substance: GEMCITABINE
     Indication: Prostate cancer
     Dates: start: 20220315

REACTIONS (3)
  - Leukopenia [Recovered/Resolved]
  - Hyperpyrexia [Recovered/Resolved]
  - Thrombocytopenia [Recovered/Resolved]

NARRATIVE: CASE EVENT DATE: 20220325
